FAERS Safety Report 24078252 (Version 1)
Quarter: 2024Q3

REPORT INFORMATION
  Report Type: Spontaneous
  Country: CN (occurrence: CN)
  Receive Date: 20240711
  Receipt Date: 20240711
  Transmission Date: 20241016
  Serious: Yes (Hospitalization, Disabling)
  Sender: PFIZER
  Company Number: CN-PFIZER INC-PV202400089423

PATIENT
  Age: 69 Year
  Sex: Male
  Weight: 42 kg

DRUGS (3)
  1. EPIRUBICIN [Suspect]
     Active Substance: EPIRUBICIN
     Indication: Hepatic cancer
     Dosage: 30 MG, 1X/DAY
     Dates: start: 20240625, end: 20240625
  2. OXALIPLATIN [Suspect]
     Active Substance: OXALIPLATIN
     Indication: Hepatic cancer
     Dosage: 50 MG, 1X/DAY
     Dates: start: 20240625, end: 20240625
  3. IODINE [Concomitant]
     Active Substance: IODINE
     Indication: Hepatic cancer
     Dosage: 2 ML, 1X/DAY
     Dates: start: 20240625, end: 20240625

REACTIONS (2)
  - Transaminases increased [Recovering/Resolving]
  - Blood bilirubin increased [Recovering/Resolving]

NARRATIVE: CASE EVENT DATE: 20240629
